FAERS Safety Report 4611393-4 (Version None)
Quarter: 2005Q1

REPORT INFORMATION
  Report Type: 
  Country: None (occurrence: None)
  Receive Date: 20050315
  Receipt Date: 20050315
  Transmission Date: 20050727
  Serious: Yes (Hospitalization)
  Sender: FDA-Public Use
  Company Number: None

PATIENT
  Sex: Male
  Weight: 78.4 kg

DRUGS (14)
  1. CARMUSTINE [Suspect]
     Indication: GLIOBLASTOMA MULTIFORME
     Dosage: 200MG IV ONCE Q 6 WEEKS
     Route: 042
     Dates: start: 20041014
  2. TOPOTECAN 1.5MG/M2/72HR [Suspect]
     Indication: GLIOBLASTOMA MULTIFORME
     Dosage: 3.0 MG 72HRS WEEKLY X 6 WKS
     Route: 042
     Dates: start: 20041014, end: 20041029
  3. LIPITOR [Concomitant]
  4. HYDROCHLOROTHIAZIDE [Concomitant]
  5. COREG [Concomitant]
  6. MULTI-VITAMIN [Concomitant]
  7. CALTRATE [Concomitant]
  8. DECADRON [Concomitant]
  9. ZANTAC [Concomitant]
  10. REMERON [Concomitant]
  11. PROVIGIL [Concomitant]
  12. LOVENOX [Concomitant]
  13. CORTEF [Concomitant]
  14. DILANTIN [Concomitant]

REACTIONS (3)
  - CHOLELITHIASIS [None]
  - EMPHYSEMATOUS CHOLECYSTITIS [None]
  - MALIGNANT NEOPLASM PROGRESSION [None]
